FAERS Safety Report 8428009-1 (Version None)
Quarter: 2012Q2

REPORT INFORMATION
  Report Type: 
  Country: None (occurrence: None)
  Receive Date: 20120611
  Receipt Date: 20110909
  Transmission Date: 20120825
  Serious: No
  Sender: FDA-Public Use
  Company Number: US-ABBOTT-11P-163-0853203-00

PATIENT
  Sex: Male
  Weight: 86.714 kg

DRUGS (7)
  1. VITAMIN D [Concomitant]
     Indication: VITAMIN SUPPLEMENTATION
  2. OCCUTAB [Concomitant]
     Indication: SUPPLEMENTATION THERAPY
  3. LISINOPRIL AND HYDROCHLOROTHIAZIDE [Concomitant]
     Indication: HYPERTENSION
  4. SIMVASTATIN [Concomitant]
     Indication: HYPERLIPIDAEMIA
  5. K-TAB [Suspect]
     Indication: PRODUCT USED FOR UNKNOWN INDICATION
     Dates: start: 20110904
  6. FISH OIL [Concomitant]
     Indication: MEDICAL DIET
  7. MULTIPLE VITAMINS [Concomitant]
     Indication: VITAMIN SUPPLEMENTATION

REACTIONS (2)
  - ASTHENIA [None]
  - FAECES DISCOLOURED [None]
